FAERS Safety Report 5932700-6 (Version None)
Quarter: 2008Q4

REPORT INFORMATION
  Report Type: 
  Country: None (occurrence: None)
  Receive Date: 20081027
  Receipt Date: 20081027
  Transmission Date: 20090506
  Serious: Yes (Other)
  Sender: FDA-Public Use
  Company Number: None

PATIENT
  Age: 29 Year
  Sex: Female
  Weight: 72.5755 kg

DRUGS (1)
  1. ZYRTEC [Suspect]

REACTIONS (6)
  - DISCOMFORT [None]
  - DRY MOUTH [None]
  - FATIGUE [None]
  - LETHARGY [None]
  - PRURITUS GENERALISED [None]
  - URTICARIA [None]
